FAERS Safety Report 5338761-X (Version None)
Quarter: 2007Q2

REPORT INFORMATION
  Report Type: 
  Country: None (occurrence: None)
  Receive Date: 20070328
  Receipt Date: 20070118
  Transmission Date: 20071010
  Serious: Yes (Other)
  Sender: FDA-Public Use
  Company Number: 13647839

PATIENT
  Weight: 72.56 kg

DRUGS (7)
  1. EMSAM [Suspect]
     Indication: DEPRESSION
     Dosage: 6 MILLIGRAM, 1/1 DAY TD
     Dates: start: 20061226
  2. IMITREX [Suspect]
     Dosage: 50 MILLIGRAM
  3. SYNTHROID [Concomitant]
  4. ESTROGENS SOL/INJ [Concomitant]
  5. AMBIEN [Concomitant]
  6. XANAX [Concomitant]
  7. LAMICTAL [Concomitant]

REACTIONS (4)
  - AKATHISIA [None]
  - APPLICATION SITE REACTION [None]
  - BLOOD PRESSURE INCREASED [None]
  - MIGRAINE [None]
